FAERS Safety Report 5043737-6 (Version None)
Quarter: 2006Q3

REPORT INFORMATION
  Report Type: 
  Country: None (occurrence: None)
  Receive Date: 20060706
  Receipt Date: 20060626
  Transmission Date: 20061208
  Serious: Yes (Other)
  Sender: FDA-Public Use
  Company Number: DE-JNJFOC-20060606115

PATIENT
  Age: 74 Year
  Sex: Female

DRUGS (13)
  1. REMINYL [Suspect]
     Route: 048
  2. REMINYL [Suspect]
     Indication: DRUG USE FOR UNKNOWN INDICATION
     Route: 048
  3. NORTRILEN [Suspect]
     Route: 048
  4. NORTRILEN [Suspect]
     Route: 048
  5. NORTRILEN [Suspect]
     Route: 048
  6. NORTRILEN [Suspect]
     Route: 048
  7. NORTRILEN [Suspect]
     Route: 048
  8. NORTRILEN [Suspect]
     Indication: DRUG USE FOR UNKNOWN INDICATION
     Dosage: 20-100MG
     Route: 048
  9. CLEXANE [Concomitant]
     Dosage: 1X0.6
     Route: 058
  10. CLEXANE [Concomitant]
     Dosage: 2X 0.6
     Route: 058
  11. BLOPRESS [Concomitant]
     Route: 048
  12. L-THYROXIN [Concomitant]
     Route: 048
  13. DISALUNIL [Concomitant]
     Route: 048

REACTIONS (5)
  - AORTIC ARTERIOSCLEROSIS [None]
  - BLOOD LACTATE DEHYDROGENASE INCREASED [None]
  - CHOLELITHIASIS [None]
  - GAMMA-GLUTAMYLTRANSFERASE INCREASED [None]
  - HEPATIC ENZYME INCREASED [None]
